FAERS Safety Report 6090670-7 (Version None)
Quarter: 2009Q1

REPORT INFORMATION
  Report Type: 
  Country: None (occurrence: None)
  Receive Date: 20090224
  Receipt Date: 20090127
  Transmission Date: 20090719
  Serious: No
  Sender: FDA-Public Use
  Company Number: US-ABBOTT-09P-163-0500321-00

PATIENT
  Sex: Female

DRUGS (4)
  1. SIMCOR [Suspect]
     Indication: BLOOD CHOLESTEROL INCREASED
     Dosage: 500/20 MG DAILY
     Dates: start: 20080901, end: 20081201
  2. DIABETES MEDS [Concomitant]
     Indication: DRUG USE FOR UNKNOWN INDICATION
  3. ANTI HYPERTENSIVE [Concomitant]
     Indication: DRUG USE FOR UNKNOWN INDICATION
  4. THYROID MEDICATION [Concomitant]
     Indication: DRUG USE FOR UNKNOWN INDICATION

REACTIONS (2)
  - ARTHRALGIA [None]
  - BLOOD URIC ACID INCREASED [None]
